FAERS Safety Report 7262833-6 (Version None)
Quarter: 2011Q1

REPORT INFORMATION
  Report Type: 
  Country: None (occurrence: None)
  Receive Date: 20110130
  Receipt Date: 20100901
  Transmission Date: 20110831
  Serious: No
  Sender: FDA-Public Use
  Company Number: US-ABBOTT-10P-163-0667755-00

PATIENT
  Age: 22 Year
  Sex: Female

DRUGS (4)
  1. HUMIRA [Suspect]
     Indication: CROHN'S DISEASE
     Dates: start: 20090101
  2. PREDNISONE [Concomitant]
     Indication: PRODUCT USED FOR UNKNOWN INDICATION
  3. FIBER [Concomitant]
     Indication: PRODUCT USED FOR UNKNOWN INDICATION
  4. STOOL SOFTNER [Concomitant]
     Indication: PRODUCT USED FOR UNKNOWN INDICATION

REACTIONS (7)
  - DRUG INEFFECTIVE [None]
  - ANAL INFECTION [None]
  - PAINFUL DEFAECATION [None]
  - ANAL ABSCESS [None]
  - CROHN'S DISEASE [None]
  - ACROCHORDON [None]
  - FREQUENT BOWEL MOVEMENTS [None]
